FAERS Safety Report 15034852 (Version 1)
Quarter: 2018Q2

REPORT INFORMATION
  Report Type: Spontaneous
  Country: US (occurrence: US)
  Receive Date: 20180529
  Receipt Date: 20180529
  Transmission Date: 20180711
  Serious: No
  Sender: FDA-Public Use
  Company Number: None

PATIENT
  Age: 79 Year
  Sex: Female
  Weight: 68.04 kg

DRUGS (1)
  1. BOTOX [Suspect]
     Active Substance: ONABOTULINUMTOXINA
     Indication: DYSTONIA
     Dosage: ?          OTHER FREQUENCY:OTHER;?
     Route: 030
     Dates: start: 20180303, end: 20180303

REACTIONS (13)
  - Eating disorder [None]
  - Dizziness [None]
  - Anal incontinence [None]
  - Diplopia [None]
  - Muscular weakness [None]
  - Urinary incontinence [None]
  - Influenza like illness [None]
  - Balance disorder [None]
  - Fatigue [None]
  - Back pain [None]
  - Eyelid ptosis [None]
  - Rash [None]
  - Dysphagia [None]

NARRATIVE: CASE EVENT DATE: 20180303
